FAERS Safety Report 9714233 (Version 1)
Quarter: 2013Q4

REPORT INFORMATION
  Report Type: Spontaneous
  Country: US (occurrence: US)
  Receive Date: 20131126
  Receipt Date: 20131126
  Transmission Date: 20140711
  Serious: No
  Sender: FDA-Public Use
  Company Number: US-GILEAD-2008-0019406

PATIENT
  Sex: Female
  Weight: 82.1 kg

DRUGS (11)
  1. LETAIRIS [Suspect]
     Indication: PULMONARY ARTERIAL HYPERTENSION
     Route: 048
     Dates: start: 20080807
  2. ACCUPRIL [Concomitant]
  3. GLIPIZIDE [Concomitant]
  4. AMOXIL [Concomitant]
  5. TYLENOL EX-STRENGTH [Concomitant]
  6. REMERON [Concomitant]
  7. ATIVAN [Concomitant]
  8. MAG CITRATE SOL [Concomitant]
  9. CALCIUM 500MG +D [Concomitant]
  10. COLACE [Concomitant]
  11. METAMUCIL [Concomitant]

REACTIONS (1)
  - Red blood cell count decreased [None]
